FAERS Safety Report 16107423 (Version 3)
Quarter: 2019Q2

REPORT INFORMATION
  Report Type: Spontaneous
  Country: JP (occurrence: JP)
  Receive Date: 20190322
  Receipt Date: 20190501
  Transmission Date: 20190711
  Serious: Yes (Life-Threatening, Hospitalization, Other)
  Sender: FDA-Public Use
  Company Number: JP-PFIZER INC-2019125653

PATIENT
  Age: 73 Year
  Sex: Male

DRUGS (3)
  1. AMIODARONE HYDROCHLORIDE. [Suspect]
     Active Substance: AMIODARONE HYDROCHLORIDE
     Indication: TACHYCARDIA
     Dosage: UNK (CONTINUOUS INTRAVENOUS INFUSION AT 25 MG/HR)
     Route: 042
  2. AMIODARONE HCL [Suspect]
     Active Substance: AMIODARONE HYDROCHLORIDE
     Indication: VENTRICULAR FIBRILLATION
     Dosage: 100 MG, UNK
     Route: 048
  3. AMIODARONE HYDROCHLORIDE. [Suspect]
     Active Substance: AMIODARONE HYDROCHLORIDE
     Indication: ATRIAL FIBRILLATION
     Dosage: UNK (CONTINUOUS INFUSION; AT 50 MG/HR FOR 6 HOURS)
     Route: 042

REACTIONS (12)
  - Altered state of consciousness [Recovering/Resolving]
  - Condition aggravated [Unknown]
  - Coagulopathy [Recovering/Resolving]
  - Cardiac failure [Unknown]
  - Chronic kidney disease [Unknown]
  - Pneumonia [Unknown]
  - Acute hepatic failure [Recovering/Resolving]
  - Atrial fibrillation [Unknown]
  - Drug-induced liver injury [Recovering/Resolving]
  - Metabolic acidosis [Unknown]
  - Acute kidney injury [Recovering/Resolving]
  - Bradycardia [Unknown]
